FAERS Safety Report 6084926-1 (Version None)
Quarter: 2009Q1

REPORT INFORMATION
  Report Type: 
  Country: None (occurrence: None)
  Receive Date: 20090220
  Receipt Date: 20090213
  Transmission Date: 20090719
  Serious: Yes (Death, Life-Threatening, Hospitalization)
  Sender: FDA-Public Use
  Company Number: US-JNJFOC-20081201041

PATIENT
  Sex: Female
  Weight: 101 kg

DRUGS (11)
  1. INTELENCE [Suspect]
     Indication: HIV INFECTION
     Route: 048
  2. BACTRIM DS [Suspect]
     Indication: PROPHYLAXIS AGAINST HIV INFECTION
  3. BENAZEPRIL HYDROCHLORIDE [Suspect]
     Indication: HYPERTENSION
  4. RALTEGRAVIR [Suspect]
     Indication: HIV INFECTION
  5. EPZICOM [Suspect]
     Indication: HIV INFECTION
  6. AMLODIPINE BESYLATE [Concomitant]
     Indication: HYPERTENSION
  7. HYDROCHLOROTHIAZIDE [Concomitant]
     Indication: HYPERTENSION
  8. ASPIRIN [Concomitant]
     Indication: CARDIOVASCULAR EVENT PROPHYLAXIS
  9. SPIRIVA [Concomitant]
     Indication: DYSPNOEA
  10. TOPROL-XL [Concomitant]
     Indication: HYPERTENSION
  11. NICOTINE [Concomitant]
     Indication: SMOKING CESSATION THERAPY
     Route: 062

REACTIONS (6)
  - DRUG RASH WITH EOSINOPHILIA AND SYSTEMIC SYMPTOMS [None]
  - FATIGUE [None]
  - HEPATIC FAILURE [None]
  - OROPHARYNGEAL SWELLING [None]
  - RENAL FAILURE ACUTE [None]
  - VERTIGO [None]
